FAERS Safety Report 8843081 (Version 1)
Quarter: 2012Q4

REPORT INFORMATION
  Report Type: 
  Country: FR (occurrence: FR)
  Receive Date: 20121016
  Receipt Date: 20121016
  Transmission Date: 20130627
  Serious: Yes (Other)
  Sender: FDA-Public Use
  Company Number: FR-009507513-1210FRA004917

PATIENT
  Sex: Female

DRUGS (2)
  1. ZOELY [Suspect]
     Indication: ORAL CONTRACEPTION
     Dosage: 1 DF, qd
     Route: 048
     Dates: start: 201208
  2. LAMICTAL [Suspect]
     Indication: IDIOPATHIC GENERALISED EPILEPSY
     Dosage: 250 mg, qd
     Route: 048
     Dates: start: 2006

REACTIONS (1)
  - Epilepsy [Recovered/Resolved]
